FAERS Safety Report 8362448-2 (Version None)
Quarter: 2012Q2

REPORT INFORMATION
  Report Type: 
  Country: None (occurrence: None)
  Receive Date: 20120516
  Receipt Date: 20120509
  Transmission Date: 20120825
  Serious: No
  Sender: FDA-Public Use
  Company Number: US-BIOGENIDEC-2010BI044803

PATIENT
  Sex: Male

DRUGS (2)
  1. AVONEX [Suspect]
     Route: 030
     Dates: start: 20030101
  2. AVONEX [Suspect]
     Indication: MULTIPLE SCLEROSIS
     Route: 030
     Dates: start: 20020415, end: 20030101

REACTIONS (17)
  - HYPERHIDROSIS [None]
  - BURNING SENSATION [None]
  - NEGLECT OF PERSONAL APPEARANCE [None]
  - OPTIC NEUROPATHY [None]
  - SKIN ODOUR ABNORMAL [None]
  - EYE PAIN [None]
  - MULTIPLE SCLEROSIS [None]
  - SKIN BURNING SENSATION [None]
  - DRUG INEFFECTIVE [None]
  - GAIT DISTURBANCE [None]
  - HYPOAESTHESIA [None]
  - PRURITUS [None]
  - MUSCULOSKELETAL STIFFNESS [None]
  - DRY SKIN [None]
  - MUSCLE SPASMS [None]
  - INJECTION SITE WARMTH [None]
  - TINEA PEDIS [None]
